FAERS Safety Report 24451462 (Version 1)
Quarter: 2024Q4

REPORT INFORMATION
  Report Type: Spontaneous
  Country: US (occurrence: US)
  Receive Date: 20241017
  Receipt Date: 20241017
  Transmission Date: 20250114
  Serious: Yes (Other)
  Sender: BAYER HEALTHCARE PHARMACEUTICALS INC.
  Company Number: US-BAYER-2024A146188

PATIENT
  Age: 73 Year
  Sex: Male

DRUGS (1)
  1. NUBEQA [Suspect]
     Active Substance: DAROLUTAMIDE

REACTIONS (10)
  - Fall [None]
  - Blood pressure increased [None]
  - Urinary retention [None]
  - Mobility decreased [None]
  - Night sweats [None]
  - Cold sweat [None]
  - Dizziness [None]
  - Vomiting [None]
  - Asthenia [None]
  - Product dose omission issue [None]
